FAERS Safety Report 5692407-X (Version None)
Quarter: 2008Q2

REPORT INFORMATION
  Report Type: 
  Country: None (occurrence: None)
  Receive Date: 20080402
  Receipt Date: 20070515
  Transmission Date: 20081010
  Serious: No
  Sender: FDA-Public Use
  Company Number: US-BAYER-US-2007-017764

PATIENT
  Age: 3 Year
  Sex: Male

DRUGS (4)
  1. LEUKINE [Suspect]
     Route: 042
     Dates: start: 20070515, end: 20070515
  2. LEUKINE [Suspect]
     Route: 058
     Dates: start: 20070501
  3. NEUPOGEN [Concomitant]
  4. BENADRYL ^PFIZER WARNER-LAMBERT^ [Concomitant]
     Indication: PREMEDICATION
     Dates: start: 20070501

REACTIONS (1)
  - URTICARIA [None]
